FAERS Safety Report 10237210 (Version 2)
Quarter: 2014Q2

REPORT INFORMATION
  Report Type: Report from Study
  Country: BR (occurrence: BR)
  Receive Date: 20140613
  Receipt Date: 20140613
  Transmission Date: 20141212
  Serious: Yes (Other)
  Sender: FDA-Public Use
  Company Number: BR-ABBVIE-11P-020-0851116-00

PATIENT
  Age: 29 Year
  Sex: Male
  Weight: 88 kg

DRUGS (4)
  1. HUMIRA 40 MG/ 0.8 ML PRE-FILLED SYRINGE [Suspect]
     Indication: CROHN^S DISEASE
     Dosage: INDUCTION DOSE
     Route: 058
     Dates: start: 20100101
  2. HUMIRA 40 MG/ 0.8 ML PRE-FILLED SYRINGE [Suspect]
     Dosage: INDUCTION DOSE
     Route: 058
     Dates: end: 20110601
  3. MESALAZINE [Concomitant]
     Indication: NEOPLASM MALIGNANT
     Route: 048
  4. MESALAZINE [Concomitant]
     Indication: PROPHYLAXIS

REACTIONS (4)
  - Intestinal stenosis [Recovered/Resolved]
  - Gastrointestinal disorder [Recovering/Resolving]
  - Drug ineffective [Unknown]
  - Crohn^s disease [Unknown]
